FAERS Safety Report 16363407 (Version 3)
Quarter: 2019Q3

REPORT INFORMATION
  Report Type: Spontaneous
  Country: US (occurrence: US)
  Receive Date: 20190528
  Receipt Date: 20190814
  Transmission Date: 20191004
  Serious: No
  Sender: FDA-Public Use
  Company Number: US-BAUSCH-BL-2019-014501

PATIENT
  Age: 41 Year
  Sex: Female
  Weight: 38.59 kg

DRUGS (2)
  1. APRISO [Suspect]
     Active Substance: MESALAMINE
     Dosage: FOUR CAPSULES DAILY IN THE MORNING
     Route: 048
     Dates: start: 201902
  2. APRISO [Suspect]
     Active Substance: MESALAMINE
     Indication: COLITIS ULCERATIVE
     Route: 048
     Dates: start: 201808, end: 201901

REACTIONS (4)
  - Nasopharyngitis [Recovered/Resolved]
  - Pyrexia [Recovered/Resolved]
  - Wrong technique in product usage process [Unknown]
  - Product size issue [Unknown]

NARRATIVE: CASE EVENT DATE: 201808
